FAERS Safety Report 7466129-9 (Version None)
Quarter: 2011Q2

REPORT INFORMATION
  Report Type: 
  Country: None (occurrence: None)
  Receive Date: 20110509
  Receipt Date: 20100624
  Transmission Date: 20111010
  Serious: Yes (Hospitalization)
  Sender: FDA-Public Use
  Company Number: US-ALEXION-A201000706

PATIENT
  Sex: Female

DRUGS (13)
  1. CELEXA [Concomitant]
     Route: 048
  2. LOVENOX [Concomitant]
     Dosage: 100 MG, QD
     Route: 058
  3. SOLIRIS [Suspect]
     Indication: PAROXYSMAL NOCTURNAL HAEMOGLOBINURIA
     Dosage: UNK
     Route: 042
  4. ADVAIR DISKUS 100/50 [Concomitant]
     Route: 055
  5. COUMADIN [Concomitant]
     Dosage: 7.5 MG, TAKE 1 AS DIRECTED
     Route: 048
  6. DILAUDID [Concomitant]
     Dosage: 2 MG, TAKE 1 Q3-4H PRN
     Route: 048
  7. LASIX [Concomitant]
     Route: 048
  8. METOPROLOL TARTRATE [Concomitant]
     Route: 048
  9. POTASSIUM CHLORIDE [Concomitant]
     Route: 048
  10. COLACE [Concomitant]
     Indication: CONSTIPATION PROPHYLAXIS
     Dosage: 100 MG, BID
     Route: 048
  11. EXJADE [Concomitant]
     Dosage: 500 MG, TAKE 3 TABS QD
     Route: 048
  12. ZITHROMAX [Concomitant]
     Dosage: 250 MG, QD TAKE 2 TABLS ON DAY 1, THEN 1 TAB QD DAYS 2-5
     Route: 048
  13. ALBUTEROL SULFATE [Concomitant]
     Route: 055

REACTIONS (5)
  - BACK PAIN [None]
  - FATIGUE [None]
  - CHEST PAIN [None]
  - TREATMENT NONCOMPLIANCE [None]
  - TRANSFUSION [None]
